FAERS Safety Report 10798436 (Version 1)
Quarter: 2015Q1

REPORT INFORMATION
  Report Type: Spontaneous
  Country: US (occurrence: US)
  Receive Date: 20150216
  Receipt Date: 20150216
  Transmission Date: 20150721
  Serious: No
  Sender: FDA-Public Use
  Company Number: US-GLAXOSMITHKLINE-US2015GSK020725

PATIENT
  Sex: Female

DRUGS (6)
  1. LAMOTRIGINE TABLET [Suspect]
     Active Substance: LAMOTRIGINE
     Indication: SEIZURE
  2. LAMICTAL XR [Suspect]
     Active Substance: LAMOTRIGINE
     Indication: SEIZURE
  3. LAMOTRIGINE TABLET [Suspect]
     Active Substance: LAMOTRIGINE
     Indication: BIPOLAR DISORDER
  4. LAMICTAL XR [Suspect]
     Active Substance: LAMOTRIGINE
     Indication: SEIZURE
     Dosage: UNK, U
     Route: 065
  5. LAMOTRIGINE TABLET [Suspect]
     Active Substance: LAMOTRIGINE
     Indication: SEIZURE
     Dosage: UNK, U
     Route: 065
     Dates: start: 20141223
  6. LAMICTAL XR [Suspect]
     Active Substance: LAMOTRIGINE
     Indication: BIPOLAR DISORDER

REACTIONS (9)
  - Headache [Unknown]
  - Dizziness [Unknown]
  - Eye movement disorder [Unknown]
  - Muscle disorder [Unknown]
  - Retching [Unknown]
  - Drug effect increased [Unknown]
  - Movement disorder [Unknown]
  - Vomiting [Unknown]
  - Drug dose omission [Unknown]
